FAERS Safety Report 7918053 (Version 3)
Quarter: 2012Q4

REPORT INFORMATION
  Report Type: 
  Country: US (occurrence: US)
  Receive Date: 20110428
  Receipt Date: 20121107
  Transmission Date: 20130627
  Serious: No
  Sender: FDA-Public Use
  Company Number: US-ASTRAZENECA-2010SE41653

PATIENT
  Age: 77 Year
  Sex: Female

DRUGS (3)
  1. ZOMIG NASAL SPRAY [Suspect]
     Route: 045
  2. COMPAZINE SUPPOSITORY [Concomitant]
  3. SCOPOLAMINE PATCH [Concomitant]

REACTIONS (2)
  - Dizziness [Unknown]
  - Drug dose omission [Unknown]
